FAERS Safety Report 5317469-0 (Version None)
Quarter: 2007Q2

REPORT INFORMATION
  Report Type: 
  Country: None (occurrence: None)
  Receive Date: 20070507
  Receipt Date: 20070424
  Transmission Date: 20071010
  Serious: Yes (Hospitalization, Other)
  Sender: FDA-Public Use
  Company Number: PHEH2006US03404

PATIENT
  Age: 40 Year
  Sex: Male

DRUGS (6)
  1. VALCYTE [Concomitant]
     Dates: start: 20051215, end: 20060305
  2. CYCLOSPORINE [Suspect]
     Indication: RENAL TRANSPLANT
     Dosage: 250 MG, QD
     Route: 048
     Dates: start: 20051220
  3. BACTRIM [Concomitant]
     Dates: start: 20051223, end: 20060305
  4. LEVOFLOXACIN [Concomitant]
     Dosage: 500 MG, ONCE/SINGLE
  5. MYCOPHENOLATE MOFETIL [Concomitant]
     Dosage: 2 G, UNK
     Route: 048
     Dates: start: 20051213
  6. PREDNISONE TAB [Concomitant]
     Dosage: 2.5 MG, UNK
     Dates: start: 20051213

REACTIONS (9)
  - BRONCHITIS [None]
  - CARDIOMEGALY [None]
  - COUGH [None]
  - NEUTROPHIL COUNT DECREASED [None]
  - PANCYTOPENIA [None]
  - PLATELET COUNT DECREASED [None]
  - PYREXIA [None]
  - RED BLOOD CELL COUNT DECREASED [None]
  - WHITE BLOOD CELL COUNT DECREASED [None]
